FAERS Safety Report 17062380 (Version 1)
Quarter: 2019Q4

REPORT INFORMATION
  Report Type: Report from Study
  Country: US (occurrence: US)
  Receive Date: 20191122
  Receipt Date: 20191122
  Transmission Date: 20200122
  Serious: No
  Sender: FDA-Public Use
  Company Number: NVSC2019US041651

PATIENT
  Sex: Female

DRUGS (1)
  1. GLATOPA [Suspect]
     Active Substance: GLATIRAMER ACETATE
     Indication: PRODUCT USED FOR UNKNOWN INDICATION
     Dosage: 40 MG, 3 TIMES A WEEK
     Route: 058

REACTIONS (4)
  - Product dose omission [Unknown]
  - Device issue [Unknown]
  - Incorrect dose administered [Unknown]
  - Injection site extravasation [Unknown]
